FAERS Safety Report 9070253 (Version 2)
Quarter: 2013Q1

REPORT INFORMATION
  Report Type: Report from Study
  Country: US (occurrence: US)
  Receive Date: 20130215
  Receipt Date: 20130305
  Transmission Date: 20140127
  Serious: Yes (Hospitalization)
  Sender: FDA-Public Use
  Company Number: US-JNJFOC-20130207912

PATIENT
  Age: 67 Year
  Sex: 0

DRUGS (5)
  1. REMICADE [Suspect]
     Indication: COLITIS ULCERATIVE
     Route: 042
  2. PREDNISONE [Suspect]
     Indication: PRODUCT USED FOR UNKNOWN INDICATION
     Dates: start: 201106
  3. CANASA [Concomitant]
  4. PRILOSEC [Concomitant]
  5. VITAMIN D3 [Concomitant]

REACTIONS (13)
  - Abdominal distension [Unknown]
  - Mood altered [Unknown]
  - Colitis [Unknown]
  - Gastric disorder [Unknown]
  - Dry eye [Unknown]
  - Blindness unilateral [Unknown]
  - Ageusia [Unknown]
  - Acne [Unknown]
  - Insomnia [Unknown]
  - Abnormal dreams [Unknown]
  - Therapeutic response decreased [Unknown]
  - Dehydration [Unknown]
  - Blood potassium decreased [Unknown]
